FAERS Safety Report 4921481-0 (Version None)
Quarter: 2006Q1

REPORT INFORMATION
  Report Type: 
  Country: None (occurrence: None)
  Receive Date: 20060224
  Receipt Date: 20060215
  Transmission Date: 20060701
  Serious: Yes (Hospitalization, Other)
  Sender: FDA-Public Use
  Company Number: PHEH2006US02185

PATIENT
  Age: 56 Year
  Sex: Male
  Weight: 62.585 kg

DRUGS (7)
  1. ZOMETA [Suspect]
     Indication: METASTASES TO BONE
     Dosage: 4 MG EVERY 4 WEEKS
     Dates: start: 20050608, end: 20050822
  2. TARCEVA [Concomitant]
     Dates: start: 20051001, end: 20051101
  3. TAXOL W/CARBOPLATIN [Concomitant]
     Dates: start: 20050701, end: 20050901
  4. CISPLATIN [Concomitant]
     Dates: start: 20050601, end: 20050701
  5. VP-16 [Concomitant]
     Dates: start: 20050601, end: 20050701
  6. OXYCONTIN [Concomitant]
     Indication: PAIN
     Dosage: 80 MG, BID
  7. PREVACID [Concomitant]
     Dosage: 30 MG, QD

REACTIONS (6)
  - JAW FRACTURE [None]
  - ORTHOPEDIC PROCEDURE [None]
  - OSTEOMYELITIS [None]
  - OSTEONECROSIS [None]
  - SWELLING [None]
  - TENDERNESS [None]
